FAERS Safety Report 17175101 (Version 1)
Quarter: 2019Q4

REPORT INFORMATION
  Report Type: Report from Study
  Country: US (occurrence: US)
  Receive Date: 20191219
  Receipt Date: 20191219
  Transmission Date: 20200122
  Serious: Yes (Other)
  Sender: FDA-Public Use
  Company Number: US-ROCHE-2479532

PATIENT

DRUGS (6)
  1. PEMETREXED. [Suspect]
     Active Substance: PEMETREXED
     Indication: NON-SMALL CELL LUNG CANCER
     Dosage: OVER 10 MINUTES ON DAY 1 OF EACH CYCLE
     Route: 042
  2. CARBOPLATIN. [Suspect]
     Active Substance: CARBOPLATIN
     Indication: NON-SMALL CELL LUNG CANCER
     Dosage: AUC=6 MG/ML, OVER 15-30 MINUTES, ON DAY 1 OF EACH CYCLE
     Route: 042
  3. PACLITAXEL. [Suspect]
     Active Substance: PACLITAXEL
     Indication: NON-SMALL CELL LUNG CANCER
     Dosage: OVER 3 HOURS, ON DAY 1 OF EACH CYCLE
     Route: 042
  4. DIPHENHYDRAMINE. [Concomitant]
     Active Substance: DIPHENHYDRAMINE
     Dosage: LESS THAN 0NE HOUR PRIOR TO PACLITAXEL INFUSION
     Route: 042
  5. BEVACIZUMAB. [Suspect]
     Active Substance: BEVACIZUMAB
     Indication: NON-SMALL CELL LUNG CANCER
     Dosage: OVER 30-90 MINUTES, ON DAY 1 OF EACH CYCLE
     Route: 042
  6. DEXAMETHASONE. [Concomitant]
     Active Substance: DEXAMETHASONE
     Route: 065

REACTIONS (40)
  - Troponin I increased [Unknown]
  - Hyperglycaemia [Unknown]
  - Hypoalbuminaemia [Unknown]
  - Hypomagnesaemia [Unknown]
  - Musculoskeletal chest pain [Unknown]
  - Disturbance in attention [Unknown]
  - Headache [Unknown]
  - Memory impairment [Unknown]
  - Lymphocyte count decreased [Unknown]
  - Hypocalcaemia [Unknown]
  - Hypokalaemia [Unknown]
  - Peripheral sensory neuropathy [Unknown]
  - Syncope [Unknown]
  - Neutrophil count decreased [Unknown]
  - Platelet count decreased [Unknown]
  - Weight increased [Unknown]
  - Decreased appetite [Unknown]
  - Hyperkalaemia [Unknown]
  - Bone pain [Unknown]
  - Encephalopathy [Unknown]
  - Dehydration [Unknown]
  - Hyponatraemia [Unknown]
  - Hypophosphataemia [Unknown]
  - Back pain [Unknown]
  - Muscular weakness [Unknown]
  - Myalgia [Unknown]
  - Peripheral motor neuropathy [Unknown]
  - Vascular access complication [Unknown]
  - Alanine aminotransferase increased [Unknown]
  - Arthralgia [Unknown]
  - Aspartate aminotransferase increased [Unknown]
  - Blood creatinine increased [Unknown]
  - White blood cell count decreased [Unknown]
  - Posterior reversible encephalopathy syndrome [Unknown]
  - Troponin T increased [Unknown]
  - Ejection fraction decreased [Unknown]
  - Weight decreased [Unknown]
  - Pain in extremity [Unknown]
  - Cognitive disorder [Unknown]
  - Dizziness [Unknown]
